FAERS Safety Report 10434998 (Version 2)
Quarter: 2014Q3

REPORT INFORMATION
  Report Type: Spontaneous
  Country: GB (occurrence: GB)
  Receive Date: 20140906
  Receipt Date: 20140914
  Transmission Date: 20150326
  Serious: No
  Sender: FDA-Public Use
  Company Number: GB-009507513-1409GBR000539

PATIENT
  Sex: Female

DRUGS (1)
  1. NEXPLANON [Suspect]
     Active Substance: ETONOGESTREL
     Indication: AMENORRHOEA
     Dosage: LOWER LIMB

REACTIONS (5)
  - Amenorrhoea [Unknown]
  - Drug administration error [Unknown]
  - Metrorrhagia [Unknown]
  - Device deployment issue [Unknown]
  - Therapeutic response changed [Unknown]
